FAERS Safety Report 9464861 (Version 1)
Quarter: 2013Q3

REPORT INFORMATION
  Report Type: Spontaneous
  Country: US (occurrence: US)
  Receive Date: 20130819
  Receipt Date: 20130819
  Transmission Date: 20140515
  Serious: No
  Sender: FDA-Public Use
  Company Number: US-PFIZER INC-2013235929

PATIENT
  Age: 76 Year
  Sex: Female

DRUGS (10)
  1. INLYTA [Suspect]
     Indication: RENAL CANCER
     Dosage: 5 MG, UNK
     Dates: start: 20130719
  2. AFINITOR [Concomitant]
     Dosage: UNK
  3. AVAPRO [Concomitant]
     Dosage: UNK
  4. CALTRATE 600 +D PLUS [Concomitant]
     Dosage: UNK
  5. CHLORHEXIDINE GLUCONATE [Concomitant]
     Dosage: UNK
  6. HYDROCHLOROTHIAZIDE [Concomitant]
     Dosage: UNK
  7. IRBESARTAN [Concomitant]
     Dosage: UNK
  8. KLONOPIN [Concomitant]
     Dosage: UNK
  9. PREVACID [Concomitant]
     Dosage: UNK
  10. PROCHLORPERAZINE MALEATE [Concomitant]
     Dosage: UNK

REACTIONS (2)
  - Confusional state [Unknown]
  - Hypertension [Unknown]
